FAERS Safety Report 4323255-0 (Version None)
Quarter: 2004Q1

REPORT INFORMATION
  Report Type: 
  Country: None (occurrence: None)
  Receive Date: 20040322
  Receipt Date: 20040308
  Transmission Date: 20041129
  Serious: Yes (Death, Hospitalization)
  Sender: FDA-Public Use
  Company Number: UK068747

PATIENT
  Age: 70 Year
  Sex: Male
  Weight: 66 kg

DRUGS (1)
  1. ARANESP [Suspect]
     Indication: RENAL FAILURE CHRONIC
     Dosage: 50 MCG, 1 IN 2 WEEKS, IV
     Route: 042
     Dates: start: 20030806, end: 20031210

REACTIONS (2)
  - CARDIAC ARREST [None]
  - PERIPHERAL OCCLUSIVE DISEASE [None]
